FAERS Safety Report 5819370-2 (Version None)
Quarter: 2008Q3

REPORT INFORMATION
  Report Type: 
  Country: None (occurrence: None)
  Receive Date: 20080723
  Receipt Date: 20080711
  Transmission Date: 20090109
  Serious: Yes (Other)
  Sender: FDA-Public Use
  Company Number: CA-ROCHE-576093

PATIENT
  Sex: Female

DRUGS (2)
  1. PEGASYS [Suspect]
     Dosage: FORM REPORTED AS PFS
     Route: 058
     Dates: start: 20080404
  2. RIBAVIRIN [Suspect]
     Route: 048
     Dates: start: 20080404

REACTIONS (1)
  - PORPHYRIA NON-ACUTE [None]
